FAERS Safety Report 9723031 (Version 1)
Quarter: 2013Q4

REPORT INFORMATION
  Report Type: Report from Study
  Country: AU (occurrence: AU)
  Receive Date: 20131202
  Receipt Date: 20131202
  Transmission Date: 20140711
  Serious: Yes (Other)
  Sender: FDA-Public Use
  Company Number: PHHY2012AU129694

PATIENT
  Age: 75 Year
  Sex: Female

DRUGS (9)
  1. ACLASTA [Suspect]
     Indication: OSTEOPOROSIS
     Dosage: 5 MG/100ML
     Route: 042
     Dates: start: 20100713
  2. ACLASTA [Suspect]
     Dosage: 5 MG/100ML
     Route: 042
     Dates: start: 201201
  3. ASTRIX [Concomitant]
     Indication: MYOCARDIAL ISCHAEMIA
     Dosage: 1 DF, DAILY
  4. CALTRATE + VITAMIN D [Concomitant]
     Indication: HYPOMAGNESAEMIA
     Dosage: 2 DF, DAILY, 1500MG (EQUIVALENT TO 600 MG CA WITH 400 UNITS)
  5. FEMARA [Concomitant]
     Indication: BREAST CANCER
     Dosage: 1 DF, DAILY
  6. LIPITOR [Concomitant]
     Indication: HYPERCHOLESTEROLAEMIA
     Dosage: 1 DF, NOCTE
  7. MAGMIN [Concomitant]
     Indication: HYPOMAGNESAEMIA
     Dosage: 3 DF, BID
  8. METOPROLOL TARTRATE [Concomitant]
     Indication: TACHYCARDIA
     Dosage: 1/4 TWICE A DAY
  9. MOBIC [Concomitant]
     Indication: ARTHRALGIA
     Dosage: 1 DF, DAILY IF REQUIRED

REACTIONS (6)
  - Peripheral sensory neuropathy [Unknown]
  - Ataxia [Unknown]
  - Hyperparathyroidism secondary [Unknown]
  - Vitamin D deficiency [Unknown]
  - Hypomagnesaemia [Unknown]
  - Osteoporosis [Unknown]
